FAERS Safety Report 8287323-3 (Version None)
Quarter: 2012Q2

REPORT INFORMATION
  Report Type: 
  Country: None (occurrence: None)
  Receive Date: 20120416
  Receipt Date: 20120416
  Transmission Date: 20120825
  Serious: Yes (Life-Threatening, Hospitalization)
  Sender: FDA-Public Use
  Company Number: None

PATIENT
  Age: 27 Year
  Sex: Male

DRUGS (2)
  1. OXACILLIN [Suspect]
     Indication: SEPTIC EMBOLUS
     Dosage: OXACILLIN 3G
     Route: 042
     Dates: start: 20120108, end: 20120109
  2. OXACILLIN [Suspect]
     Indication: ENDOCARDITIS
     Dosage: OXACILLIN 3G
     Route: 042
     Dates: start: 20120108, end: 20120109

REACTIONS (6)
  - CELLS IN URINE [None]
  - URINARY SEDIMENT PRESENT [None]
  - BLOOD CREATININE INCREASED [None]
  - TUBULOINTERSTITIAL NEPHRITIS [None]
  - URINARY CASTS [None]
  - CRYSTAL URINE [None]
